FAERS Safety Report 5387751-X (Version None)
Quarter: 2007Q3

REPORT INFORMATION
  Report Type: 
  Country: None (occurrence: None)
  Receive Date: 20070716
  Receipt Date: 20070706
  Transmission Date: 20080115
  Serious: Yes (Other)
  Sender: FDA-Public Use
  Company Number: B0478933A

PATIENT
  Age: 46 Year
  Sex: Female

DRUGS (3)
  1. FLIXONASE [Suspect]
     Indication: SINUSITIS
     Route: 055
     Dates: start: 20070328, end: 20070426
  2. KLIMICIN [Suspect]
     Indication: SINUSITIS
     Dosage: 300MG TWICE PER DAY
     Route: 048
  3. LORATADINE [Suspect]
     Indication: SINUSITIS
     Dosage: 5MG PER DAY
     Route: 048

REACTIONS (7)
  - ANGIOEDEMA [None]
  - ERYTHEMA [None]
  - FACE OEDEMA [None]
  - JOINT SWELLING [None]
  - OEDEMA PERIPHERAL [None]
  - PRURITUS [None]
  - URTICARIA [None]
